FAERS Safety Report 5931943-5 (Version None)
Quarter: 2008Q4

REPORT INFORMATION
  Report Type: 
  Country: None (occurrence: None)
  Receive Date: 20081027
  Receipt Date: 20081021
  Transmission Date: 20090506
  Serious: Yes (Hospitalization)
  Sender: FDA-Public Use
  Company Number: PHHY2008JP20993

PATIENT
  Age: 30 Year
  Sex: Female
  Weight: 49 kg

DRUGS (7)
  1. NEORAL [Suspect]
     Indication: APLASTIC ANAEMIA
     Dosage: 100 MG, TID
     Route: 048
     Dates: start: 20080818, end: 20080901
  2. LYMPHOGLOBULINE [Concomitant]
  3. SOLU-MEDROL [Concomitant]
     Dosage: UNK
     Dates: start: 20080904
  4. PREDNISOLONE [Concomitant]
     Dosage: UNK
     Dates: start: 20080904
  5. MUCOSTA [Concomitant]
     Route: 048
  6. DIFLUCAN [Concomitant]
  7. COTRIM [Concomitant]

REACTIONS (8)
  - APHASIA [None]
  - BLOOD BILIRUBIN INCREASED [None]
  - BLOOD LACTATE DEHYDROGENASE INCREASED [None]
  - CEREBRAL INFARCTION [None]
  - LEUKOENCEPHALOPATHY [None]
  - MUSCULAR WEAKNESS [None]
  - PARALYSIS [None]
  - SENSORY DISTURBANCE [None]
